FAERS Safety Report 11781060 (Version 1)
Quarter: 2015Q4

REPORT INFORMATION
  Report Type: Spontaneous
  Country: US (occurrence: US)
  Receive Date: 20151126
  Receipt Date: 20151126
  Transmission Date: 20160305
  Serious: No
  Sender: FDA-Public Use
  Company Number: PHEH2015US024515

PATIENT
  Sex: Male

DRUGS (1)
  1. ENTRESTO [Suspect]
     Active Substance: SACUBITRIL\VALSARTAN
     Indication: CARDIAC FAILURE CHRONIC
     Dosage: 49/51 MG, BID
     Route: 048
     Dates: start: 20150928

REACTIONS (4)
  - Hypotension [Unknown]
  - Dyspnoea [Unknown]
  - Oedema [Unknown]
  - Dizziness [Unknown]

NARRATIVE: CASE EVENT DATE: 20151120
